FAERS Safety Report 10168239 (Version 1)
Quarter: 2014Q2

REPORT INFORMATION
  Report Type: Report from Study
  Country: US (occurrence: US)
  Receive Date: 20140512
  Receipt Date: 20140512
  Transmission Date: 20141212
  Serious: Yes (Other)
  Sender: FDA-Public Use
  Company Number: US-ABBVIE-14P-163-1233415-00

PATIENT
  Sex: Female
  Weight: 79.45 kg

DRUGS (14)
  1. HUMIRA [Suspect]
     Indication: RHEUMATOID ARTHRITIS
     Dates: start: 200306, end: 20140414
  2. IMURAN [Suspect]
     Indication: RHEUMATOID ARTHRITIS
     Dates: start: 201401
  3. ARICEPT [Suspect]
     Indication: MEMORY IMPAIRMENT
     Dates: start: 201404
  4. METHOTREXAAT [Suspect]
     Indication: RHEUMATOID ARTHRITIS
     Dates: end: 201311
  5. CYCLOBENZAPRINE [Concomitant]
     Indication: INSOMNIA
  6. OMEPRAZOLE [Concomitant]
     Indication: GASTROOESOPHAGEAL REFLUX DISEASE
  7. ZYRTEC [Concomitant]
     Indication: HYPERSENSITIVITY
  8. CELECOXIB [Concomitant]
     Indication: ARTHRITIS
  9. VITAMIN B12 [Concomitant]
     Indication: VITAMIN B12 DEFICIENCY
  10. MAGNESIUM [Concomitant]
     Indication: MINERAL SUPPLEMENTATION
  11. SINGULAIR [Concomitant]
     Indication: ASTHMA
  12. CYMBALTA [Concomitant]
     Indication: AMNESIA
  13. CYMBALTA [Concomitant]
     Indication: DEPRESSION
  14. OXYBUTYNIN CHLORIDE [Concomitant]
     Indication: HYPERTONIC BLADDER

REACTIONS (15)
  - Bradycardia [Recovered/Resolved]
  - Dizziness [Recovered/Resolved]
  - Fatigue [Recovered/Resolved]
  - Hypersomnia [Recovered/Resolved]
  - Toxicity to various agents [Recovered/Resolved]
  - Urticaria [Recovered/Resolved]
  - Contusion [Recovered/Resolved]
  - Vomiting [Recovered/Resolved]
  - Cough [Recovered/Resolved]
  - Memory impairment [Not Recovered/Not Resolved]
  - Incision site pruritus [Recovering/Resolving]
  - Incisional drainage [Recovering/Resolving]
  - Incision site erythema [Recovering/Resolving]
  - Incision site infection [Recovering/Resolving]
  - Rash [Recovered/Resolved]
